FAERS Safety Report 18733226 (Version 2)
Quarter: 2021Q1

REPORT INFORMATION
  Report Type: Spontaneous
  Country: DE (occurrence: DE)
  Receive Date: 20210112
  Receipt Date: 20210224
  Transmission Date: 20210419
  Serious: Yes (Other)
  Sender: FDA-Public Use
  Company Number: DE-B.I. PHARMACEUTICALS,INC./RIDGEFIELD-2021-BI-074398

PATIENT
  Age: 58 Year
  Sex: Female

DRUGS (2)
  1. GILOTRIF [Suspect]
     Active Substance: AFATINIB
     Indication: EGFR GENE MUTATION
  2. GILOTRIF [Suspect]
     Active Substance: AFATINIB
     Indication: LUNG ADENOCARCINOMA
     Dates: start: 201709, end: 201711

REACTIONS (10)
  - Skin fissures [Unknown]
  - Metastases to adrenals [Unknown]
  - Diarrhoea [Unknown]
  - Stomatitis [Unknown]
  - Renal abscess [Unknown]
  - Disease progression [Unknown]
  - Urosepsis [Unknown]
  - Urinary retention [Unknown]
  - Adrenal gland cancer [Unknown]
  - Malignant neoplasm progression [Unknown]

NARRATIVE: CASE EVENT DATE: 201711
